FAERS Safety Report 15319849 (Version 1)
Quarter: 2018Q3

REPORT INFORMATION
  Report Type: Report from Study
  Country: JP (occurrence: JP)
  Receive Date: 20180827
  Receipt Date: 20180827
  Transmission Date: 20181010
  Serious: No
  Sender: FDA-Public Use
  Company Number: JP-BIOVERATIV-2018BV000551

PATIENT
  Sex: Male

DRUGS (5)
  1. GASTER [Concomitant]
     Active Substance: FAMOTIDINE
     Indication: CHRONIC GASTRITIS
     Route: 065
  2. NOVACT M [Concomitant]
     Indication: HAEMARTHROSIS
  3. ALPROLIX [Suspect]
     Active Substance: EFTRENONACOG ALFA
     Dosage: PRELIMINARY SUPPLEMENTAL TREATMENT
     Route: 042
     Dates: start: 20150113, end: 20150113
  4. NOVACT M [Concomitant]
     Indication: HAEMORRHAGE
     Dosage: AT BLEEDING
     Route: 065
  5. ALPROLIX [Suspect]
     Active Substance: EFTRENONACOG ALFA
     Indication: FACTOR IX DEFICIENCY
     Dosage: ROUTINE TREATMENT
     Route: 042
     Dates: start: 20150113

REACTIONS (1)
  - Haemarthrosis [Recovered/Resolved]
